FAERS Safety Report 5666381-6 (Version None)
Quarter: 2008Q1

REPORT INFORMATION
  Report Type: 
  Country: None (occurrence: None)
  Receive Date: 20080314
  Receipt Date: 20071214
  Transmission Date: 20080703
  Serious: No
  Sender: FDA-Public Use
  Company Number: US-ABBOTT-07P-163-0430576-00

PATIENT
  Sex: Male
  Weight: 102.3 kg

DRUGS (6)
  1. HUMIRA [Suspect]
     Indication: CROHN'S DISEASE
     Route: 058
     Dates: start: 20071203, end: 20071203
  2. HUMIRA [Suspect]
     Route: 058
     Dates: start: 20071119, end: 20071119
  3. HUMIRA [Suspect]
     Route: 058
     Dates: start: 20071217
  4. FOLIC ACID [Concomitant]
     Indication: VITAMIN SUPPLEMENTATION
     Route: 048
     Dates: start: 20040101
  5. ACTOPLUSMETS [Concomitant]
     Indication: DIABETES MELLITUS
     Route: 048
     Dates: start: 20071001
  6. EXFORGE [Concomitant]
     Indication: DIABETES MELLITUS
     Route: 048
     Dates: start: 20071001

REACTIONS (2)
  - CROHN'S DISEASE [None]
  - MUSCULOSKELETAL PAIN [None]
